FAERS Safety Report 23846103 (Version 2)
Quarter: 2024Q3

REPORT INFORMATION
  Report Type: Other
  Country: US (occurrence: US)
  Receive Date: 20240512
  Receipt Date: 20240815
  Transmission Date: 20241016
  Serious: No
  Sender: TRAVERE THERAPEUTICS
  Company Number: US-TRAVERE-2024TVT00434

PATIENT
  Age: 51 Year
  Sex: Male

DRUGS (2)
  1. FILSPARI [Suspect]
     Active Substance: SPARSENTAN
     Indication: Proteinuria
     Dosage: EXPIRY DATE: 21-AUG-2024
     Route: 048
     Dates: start: 202404
  2. FILSPARI [Suspect]
     Active Substance: SPARSENTAN
     Indication: Chronic kidney disease

REACTIONS (3)
  - Asthenia [Recovered/Resolved]
  - Product use in unapproved indication [Unknown]
  - Hypotension [Unknown]
